FAERS Safety Report 17244528 (Version 1)
Quarter: 2020Q1

REPORT INFORMATION
  Report Type: Report from Study
  Country: CA (occurrence: CA)
  Receive Date: 20200107
  Receipt Date: 20200107
  Transmission Date: 20200409
  Serious: Yes (Other)
  Sender: FDA-Public Use
  Company Number: CA-BEH-2019102107

PATIENT
  Age: 56 Year
  Sex: Female

DRUGS (6)
  1. HIZENTRA [Suspect]
     Active Substance: HUMAN IMMUNOGLOBULIN G
     Dosage: 60 MILLILITER
     Route: 058
     Dates: start: 20170112
  2. HIZENTRA [Suspect]
     Active Substance: HUMAN IMMUNOGLOBULIN G
     Dosage: 60 MILLILITER, QW
     Route: 058
     Dates: start: 201903
  3. HIZENTRA [Suspect]
     Active Substance: HUMAN IMMUNOGLOBULIN G
     Indication: PRIMARY IMMUNODEFICIENCY SYNDROME
     Dosage: 8 G, QW
     Route: 058
     Dates: start: 20170112, end: 2018
  4. PERCOCET                           /00446701/ [Concomitant]
     Active Substance: ACETAMINOPHEN\OXYCODONE HYDROCHLORIDE\OXYCODONE TEREPHTHALATE
     Dosage: UNK, PRN
     Route: 065
  5. HIZENTRA [Suspect]
     Active Substance: HUMAN IMMUNOGLOBULIN G
     Indication: IMMUNODEFICIENCY COMMON VARIABLE
     Dosage: 8 G, QW
     Route: 058
     Dates: start: 2018
  6. SYNTHROID [Concomitant]
     Active Substance: LEVOTHYROXINE SODIUM

REACTIONS (10)
  - Postoperative abscess [Recovered/Resolved]
  - Postoperative wound infection [Recovered/Resolved]
  - Infected cyst [Unknown]
  - Breast swelling [Unknown]
  - Breast cancer [Unknown]
  - Invasive ductal breast carcinoma [Unknown]
  - Breast pain [Unknown]
  - Breast necrosis [Unknown]
  - Post procedural haematoma [Recovered/Resolved]
  - Breast haematoma [Unknown]

NARRATIVE: CASE EVENT DATE: 20190411
